FAERS Safety Report 25980975 (Version 1)
Quarter: 2025Q4

REPORT INFORMATION
  Report Type: Spontaneous
  Country: US (occurrence: US)
  Receive Date: 20251030
  Receipt Date: 20251030
  Transmission Date: 20260117
  Serious: No
  Sender: NOVARTIS
  Company Number: US-002147023-NVSC2025US164322

PATIENT
  Age: 70 Year
  Sex: Male

DRUGS (1)
  1. LEQVIO [Suspect]
     Active Substance: INCLISIRAN SODIUM
     Indication: Low density lipoprotein increased
     Dosage: 284 MG, OTHER (INITIAL DOSE, AGAIN AT 3 MONTHS, EVERY 6 MONTHS THEREAFTER)
     Route: 058
     Dates: start: 202510, end: 202510

REACTIONS (1)
  - Rash [Unknown]
